FAERS Safety Report 8086107-9 (Version None)
Quarter: 2012Q1

REPORT INFORMATION
  Report Type: 
  Country: None (occurrence: None)
  Receive Date: 20120128
  Receipt Date: 20110413
  Transmission Date: 20120608
  Serious: No
  Sender: FDA-Public Use
  Company Number: US-ABBOTT-11P-163-0718931-00

PATIENT
  Sex: Female
  Weight: 49.94 kg

DRUGS (6)
  1. OMEPRAZOLE [Concomitant]
     Indication: GASTROOESOPHAGEAL REFLUX DISEASE
  2. HUMIRA [Suspect]
     Dates: start: 20110330, end: 20110330
  3. ASACOL [Concomitant]
     Indication: COLITIS ULCERATIVE
  4. MERCAPTOPURINE [Concomitant]
     Indication: COLITIS ULCERATIVE
  5. PREDNISONE TAB [Concomitant]
     Indication: COLITIS ULCERATIVE
  6. HUMIRA [Suspect]
     Indication: COLITIS ULCERATIVE
     Dates: start: 20110316, end: 20110316

REACTIONS (6)
  - ANXIETY [None]
  - PARAESTHESIA [None]
  - RASH [None]
  - HYPOAESTHESIA [None]
  - HEADACHE [None]
  - SWOLLEN TONGUE [None]
